FAERS Safety Report 26119909 (Version 3)
Quarter: 2025Q4

REPORT INFORMATION
  Report Type: Spontaneous
  Country: US (occurrence: US)
  Receive Date: 20251204
  Receipt Date: 20251210
  Transmission Date: 20260118
  Serious: No
  Sender: SANOFI AVENTIS
  Company Number: US-SA-2025SA362481

PATIENT
  Age: 69 Year
  Sex: Female
  Weight: 68.64 kg

DRUGS (1)
  1. DUPIXENT [Suspect]
     Active Substance: DUPILUMAB
     Indication: Asthma
     Dosage: 300 MG, QOW
     Route: 058

REACTIONS (3)
  - Injection site haemorrhage [Unknown]
  - Accidental exposure to product [Unknown]
  - Exposure via skin contact [Unknown]
